FAERS Safety Report 20616323 (Version 1)
Quarter: 2022Q1

REPORT INFORMATION
  Report Type: Spontaneous
  Country: US (occurrence: None)
  Receive Date: 20220318
  Receipt Date: 20220318
  Transmission Date: 20220423
  Serious: Yes (Other)
  Sender: FDA-Public Use
  Company Number: None

PATIENT
  Age: 84 Year
  Sex: Male
  Weight: 97.3 kg

DRUGS (10)
  1. CAPECITABINE [Suspect]
     Active Substance: CAPECITABINE
     Indication: Small intestine carcinoma
     Dosage: FREQUENCY : TWICE A DAY;?
     Route: 048
  2. fluticasone susp [Concomitant]
  3. BUMETANIDE [Concomitant]
     Active Substance: BUMETANIDE
  4. MELOXICAM [Concomitant]
     Active Substance: MELOXICAM
  5. MECLIZINE [Concomitant]
     Active Substance: MECLIZINE HYDROCHLORIDE
  6. HYDROCORTISONE [Concomitant]
     Active Substance: HYDROCORTISONE
  7. SIMVASTATIN [Concomitant]
     Active Substance: SIMVASTATIN
  8. FINASTERIDE [Concomitant]
     Active Substance: FINASTERIDE
  9. TAMSULOSIN [Concomitant]
     Active Substance: TAMSULOSIN
  10. ASPIRIN [Concomitant]
     Active Substance: ASPIRIN

REACTIONS (3)
  - Chest pain [None]
  - Troponin increased [None]
  - Therapy cessation [None]

NARRATIVE: CASE EVENT DATE: 20220131
